FAERS Safety Report 6997742-0 (Version None)
Quarter: 2010Q3

REPORT INFORMATION
  Report Type: 
  Country: None (occurrence: None)
  Receive Date: 20100919
  Receipt Date: 20100909
  Transmission Date: 20110219
  Serious: Yes (Other)
  Sender: FDA-Public Use
  Company Number: PHHY2010ZA59759

PATIENT
  Age: 79 Year
  Sex: Female

DRUGS (3)
  1. ACLASTA [Suspect]
     Dosage: 5 MG/ 100 ML
  2. CIPRIL [Concomitant]
  3. ELTROXIN [Concomitant]

REACTIONS (2)
  - FEELING ABNORMAL [None]
  - MYALGIA [None]
